FAERS Safety Report 7431963-8 (Version None)
Quarter: 2011Q2

REPORT INFORMATION
  Report Type: 
  Country: None (occurrence: None)
  Receive Date: 20110419
  Receipt Date: 20110419
  Transmission Date: 20111010
  Serious: Yes (Hospitalization)
  Sender: FDA-Public Use
  Company Number: None

PATIENT
  Age: 51 Year
  Sex: Female
  Weight: 54.4316 kg

DRUGS (3)
  1. RESTYLINE [Concomitant]
  2. DYSPORT [Suspect]
     Indication: SKIN WRINKLING
     Dosage: 100 UNITS ONCE CUTANEOUS
     Route: 003
     Dates: start: 20100423, end: 20100423
  3. PERLANE [Concomitant]

REACTIONS (29)
  - FATIGUE [None]
  - DRY MOUTH [None]
  - CHILLS [None]
  - TREMOR [None]
  - HYPERACUSIS [None]
  - DRUG HYPERSENSITIVITY [None]
  - TINNITUS [None]
  - IMPAIRED WORK ABILITY [None]
  - DYSARTHRIA [None]
  - CHEST DISCOMFORT [None]
  - DYSPHONIA [None]
  - HEADACHE [None]
  - JOINT STIFFNESS [None]
  - NAUSEA [None]
  - PALPITATIONS [None]
  - VISION BLURRED [None]
  - DIZZINESS [None]
  - WEIGHT DECREASED [None]
  - EXERCISE TOLERANCE DECREASED [None]
  - PARAESTHESIA [None]
  - MUSCLE TIGHTNESS [None]
  - APTYALISM [None]
  - APHAGIA [None]
  - THROAT TIGHTNESS [None]
  - HYPERHIDROSIS [None]
  - JOINT RANGE OF MOTION DECREASED [None]
  - ABNORMAL SENSATION IN EYE [None]
  - PHOTOPHOBIA [None]
  - EAR DISCOMFORT [None]
